FAERS Safety Report 9007119 (Version 1)
Quarter: 2013Q1

REPORT INFORMATION
  Report Type: Spontaneous
  Country: US (occurrence: US)
  Receive Date: 20130110
  Receipt Date: 20130110
  Transmission Date: 20140127
  Serious: Yes (Hospitalization)
  Sender: FDA-Public Use
  Company Number: US-BAYER-2013-001581

PATIENT
  Age: 44 Year
  Sex: Female
  Weight: 82 kg

DRUGS (29)
  1. YAZ [Suspect]
     Indication: ACNE
  2. CAPSAICIN [Concomitant]
     Indication: PAIN
     Dosage: 0.025 %, TID, APPLY A THIN FILM TOPICALLY THREE TIMES A DAY TO AFFECTED AREA
     Route: 061
  3. LISINOPRIL [Concomitant]
     Indication: MIGRAINE PROPHYLAXIS
     Dosage: 20 MG, TAKE ONE-HALF TABLET ONE TIME EACH DAY
     Route: 048
  4. PANTOPRAZOLE SODIUM [Concomitant]
     Indication: GASTRIC DISORDER
     Dosage: 40 MG, ONE TABLET OM ? HOUR BEFORE BREAKFAST
     Route: 048
  5. SULINDAC [Concomitant]
     Indication: PAIN
     Dosage: 150 MG, BID TAKE WITH FOOD
     Route: 048
  6. TIZANIDINE HYDROCHLORIDE [Concomitant]
     Indication: MUSCLE SPASMS
     Dosage: 2 MG, ONE TABLET EVERY MORNING AND TAKE ONE TABLET EVERY DAY AT NOON TIME AND TWO TABLETS AT BEDTIME
     Route: 048
  7. HYDROCODONE W/ACETAMINOPHEN [Concomitant]
     Indication: PAIN
     Dosage: ACETAMINOPHEN 500 MG / HYDROCODONE 5 MG, TABLET TWICE A DAY AS NEEDED
     Route: 048
  8. ACETAMINOPHEN/BUTALB/CAFN [Concomitant]
     Indication: HEADACHE
     Dosage: 325MG/50MG/40MG, 2 TABLETS ONE TIME PER DAY
     Route: 048
  9. AMITRIPTYLINE HCL [Concomitant]
     Indication: DEPRESSION
     Dosage: 50 MG, TWO TABLETS EVERY MORNING AND TWO TABLETS AT BEDTIME
     Route: 048
  10. AMITRIPTYLINE HCL [Concomitant]
     Indication: MIGRAINE
  11. CIPROFLOXACIN HCL [Concomitant]
     Indication: INFECTION
     Dosage: 0.3 %, INSTILL DROPS INTO LEFT EYE QID
     Route: 047
  12. CITALOPRAM HYDROBROMIDE [Concomitant]
     Indication: ANXIETY
     Dosage: 40 MG, ONE-HALF TABLET ONE TIME EACH DAY
     Route: 048
  13. DIAZEPAM [Concomitant]
     Dosage: 10 MG, ONE TABLET ONE TIME EACH DAY. MAY TAKE 1 EXTRA TABLET AS NEEDED
     Route: 048
  14. PREDNISOLONE ACETATE [Concomitant]
     Indication: INFLAMMATION
     Dosage: INSTILL 2 DROPS TWICE A DAY
     Route: 047
  15. ZOLMITRIPTAN [Concomitant]
     Indication: HEADACHE
     Dosage: 5 MG, SPRAY ONE SPRAY IN ONE NOSTRIL AS NEEDED, MAY REPEAT DOSE AFTER 2 HOURS IF NEEDED
     Route: 045
  16. TOPIRAMATE [Concomitant]
     Indication: MIGRAINE PROPHYLAXIS
     Dosage: 25 MG, ONE TABLET ONE TIME EACH DAY
     Route: 048
  17. AMLODIPINE BESYLATE [Concomitant]
     Indication: BLOOD PRESSURE ABNORMAL
     Dosage: 5 MG, ONE TABLET ONE TIME EACH DAY
     Route: 048
  18. ZOLPIDEM [Concomitant]
     Indication: SLEEP DISORDER
     Dosage: 5 MG, HS AS NEEDED
     Route: 048
  19. FLUNISOLIDE [Concomitant]
     Indication: MULTIPLE ALLERGIES
     Dosage: 0.025 %, SPRAY IN EACH NOSTRIL BID
     Route: 045
     Dates: start: 20120410
  20. CLONIDINE [Concomitant]
     Dosage: 0.1 MG, UNK
  21. TUBERCULIN [Concomitant]
     Dosage: 0.1 ML, UNK
     Route: 023
     Dates: start: 20120410
  22. METOPROLOL TARTRATE [Concomitant]
     Indication: BLOOD PRESSURE ABNORMAL
     Dosage: ONE-HALF TABLET TWICE A DAY
     Route: 048
     Dates: start: 20120416
  23. HYDROCHLOROTHIAZIDE [Concomitant]
     Indication: BLOOD PRESSURE ABNORMAL
     Dosage: 25 MG, ONE-HALF TABLET OM
     Route: 048
     Dates: start: 20120417
  24. POTASSIUM CHLORIDE [Concomitant]
     Indication: ELECTROLYTE SUBSTITUTION THERAPY
     Dosage: 10 MEQ, FOUR TABLETS BID
     Route: 048
     Dates: start: 20120417
  25. FIORICET [Concomitant]
  26. HYDROCODONE [Concomitant]
     Indication: BACK PAIN
  27. CYMBALTA [Concomitant]
     Indication: MIGRAINE
  28. CYMBALTA [Concomitant]
     Indication: PAIN
  29. BACTRIM [Concomitant]

REACTIONS (1)
  - Pulmonary embolism [None]
